FAERS Safety Report 4938208-9 (Version None)
Quarter: 2006Q1

REPORT INFORMATION
  Report Type: 
  Country: None (occurrence: None)
  Receive Date: 20060306
  Receipt Date: 20060224
  Transmission Date: 20060701
  Serious: Yes (Hospitalization, Disabling, Other)
  Sender: FDA-Public Use
  Company Number: USA-2004-0016319

PATIENT
  Sex: Female

DRUGS (3)
  1. OXYCONTIN [Suspect]
     Indication: PAIN
     Dosage: 10 MG, BID
  2. ZOLOFT [Concomitant]
  3. PERCOCET [Concomitant]

REACTIONS (52)
  - ABNORMAL DREAMS [None]
  - ASTHENIA [None]
  - BALANCE DISORDER [None]
  - BLEPHARITIS [None]
  - CHEST DISCOMFORT [None]
  - CHEST PAIN [None]
  - CLONUS [None]
  - COORDINATION ABNORMAL [None]
  - DELUSIONAL DISORDER, UNSPECIFIED TYPE [None]
  - DEPRESSION [None]
  - DIFFICULTY IN WALKING [None]
  - DISTURBANCE IN ATTENTION [None]
  - DRUG DEPENDENCE [None]
  - DRUG WITHDRAWAL SYNDROME [None]
  - DYSMENORRHOEA [None]
  - DYSPAREUNIA [None]
  - DYSPNOEA [None]
  - EAR PAIN [None]
  - FALLOPIAN TUBE DISORDER [None]
  - FEELING ABNORMAL [None]
  - GAIT DISTURBANCE [None]
  - GASTROOESOPHAGEAL REFLUX DISEASE [None]
  - HAEMATOCRIT DECREASED [None]
  - HYPERREFLEXIA [None]
  - HYPOAESTHESIA [None]
  - KERATOCONJUNCTIVITIS SICCA [None]
  - LIBIDO DECREASED [None]
  - MEMORY IMPAIRMENT [None]
  - MENORRHAGIA [None]
  - MENTAL IMPAIRMENT [None]
  - MICTURITION URGENCY [None]
  - MIGRAINE [None]
  - MUSCLE SPASTICITY [None]
  - MUSCULOSKELETAL DISCOMFORT [None]
  - NIGHTMARE [None]
  - NOCTURIA [None]
  - OBSESSIVE-COMPULSIVE DISORDER [None]
  - PAIN [None]
  - PARANOIA [None]
  - PELVIC MASS [None]
  - PELVIC PERITONEAL ADHESIONS [None]
  - PERONEAL NERVE PALSY [None]
  - PHOTOPHOBIA [None]
  - POSTOPERATIVE INFECTION [None]
  - PROCEDURAL PAIN [None]
  - SENSORY LOSS [None]
  - SOMNOLENCE [None]
  - SPINAL DEFORMITY [None]
  - STRESS [None]
  - THROAT IRRITATION [None]
  - URGE INCONTINENCE [None]
  - UTERINE LEIOMYOMA [None]
